FAERS Safety Report 6194010-4 (Version None)
Quarter: 2009Q2

REPORT INFORMATION
  Report Type: 
  Country: None (occurrence: None)
  Receive Date: 20090518
  Receipt Date: 20090511
  Transmission Date: 20091009
  Serious: Yes (Death, Life-Threatening, Hospitalization, Other)
  Sender: FDA-Public Use
  Company Number: PHHO2007GB14659

PATIENT
  Sex: Male
  Weight: 82.3 kg

DRUGS (5)
  1. NEORAL [Suspect]
     Dosage: 100/75MG QD
     Route: 048
     Dates: start: 20070202, end: 20090218
  2. NEORAL [Suspect]
     Dosage: UNK
     Route: 048
  3. MYCOPHENOLATE MOFETIL [Suspect]
     Indication: HEART TRANSPLANT
     Dosage: 500 MG, TID
     Route: 048
     Dates: start: 20070202, end: 20070823
  4. ANTINEOPLASTIC AGENTS [Suspect]
     Indication: LYMPHOPROLIFERATIVE DISORDER
  5. PREDNISOLONE [Concomitant]
     Indication: HEART TRANSPLANT
     Dosage: 5 MG, QD
     Route: 048
     Dates: start: 20070202, end: 20090218

REACTIONS (10)
  - ABDOMINAL PAIN [None]
  - CARDIAC DISORDER [None]
  - CENTRAL VENOUS CATHETERISATION [None]
  - EPSTEIN-BARR VIRUS ASSOCIATED LYMPHOPROLIFERATIVE DISORDER [None]
  - EPSTEIN-BARR VIRUS INFECTION [None]
  - INFECTION [None]
  - MEDIASTINAL MASS [None]
  - NAUSEA [None]
  - PNEUMONIA [None]
  - STEM CELL TRANSPLANT [None]
